FAERS Safety Report 14646375 (Version 9)
Quarter: 2019Q1

REPORT INFORMATION
  Report Type: Report from Study
  Country: JP (occurrence: JP)
  Receive Date: 20180316
  Receipt Date: 20190321
  Transmission Date: 20190417
  Serious: Yes (Life-Threatening, Hospitalization, Disabling, Other)
  Sender: FDA-Public Use
  Company Number: JP-BEH-2018088808

PATIENT
  Age: 73 Year
  Sex: Male
  Weight: 64 kg

DRUGS (30)
  1. BERIPLEX P/N [Suspect]
     Active Substance: COAGULATION FACTOR IX HUMAN\COAGULATION FACTOR VII HUMAN\COAGULATION FACTOR X HUMAN\PROTEIN C\PROTEIN S HUMAN\PROTHROMBIN
     Indication: CEREBRAL HAEMORRHAGE
  2. LIXIANA [Concomitant]
     Active Substance: EDOXABAN TOSYLATE
     Indication: ATRIAL FIBRILLATION
     Dosage: 60 MG, QD
     Route: 048
     Dates: start: 20180222, end: 20180323
  3. LIXIANA [Concomitant]
     Active Substance: EDOXABAN TOSYLATE
     Indication: PROPHYLAXIS
  4. ELIQUIS [Concomitant]
     Active Substance: APIXABAN
     Indication: PROPHYLAXIS
  5. BAYASPIRIN [Concomitant]
     Active Substance: ASPIRIN
     Indication: CEREBROVASCULAR DISORDER
     Dosage: UNK
     Route: 048
     Dates: end: 20180116
  6. AROTINOLOL HYDROCHLORIDE [Concomitant]
     Active Substance: AROTINOLOL HYDROCHLORIDE
     Dosage: UNK
     Route: 048
     Dates: end: 20180124
  7. PRIMPERAN [Concomitant]
     Active Substance: METOCLOPRAMIDE HYDROCHLORIDE
     Indication: PROPHYLAXIS OF NAUSEA AND VOMITING
     Dosage: UNK
     Route: 065
     Dates: start: 20180117, end: 20180117
  8. PODONIN S [Concomitant]
     Indication: PROPHYLAXIS AGAINST GASTROINTESTINAL ULCER
     Dosage: UNK
     Route: 048
     Dates: end: 20180116
  9. PRAVASTATIN. [Concomitant]
     Active Substance: PRAVASTATIN
     Dosage: UNK
     Route: 048
     Dates: end: 20180116
  10. BERIPLEX P/N [Suspect]
     Active Substance: COAGULATION FACTOR IX HUMAN\COAGULATION FACTOR VII HUMAN\COAGULATION FACTOR X HUMAN\PROTEIN C\PROTEIN S HUMAN\PROTHROMBIN
     Indication: HAEMOSTASIS
     Dosage: 1600 IU, TOT
     Route: 042
     Dates: start: 20180117, end: 20180117
  11. BERIPLEX P/N [Suspect]
     Active Substance: COAGULATION FACTOR IX HUMAN\COAGULATION FACTOR VII HUMAN\COAGULATION FACTOR X HUMAN\PROTEIN C\PROTEIN S HUMAN\PROTHROMBIN
     Indication: HAEMORRHAGE
  12. WARFARIN [Concomitant]
     Active Substance: WARFARIN
     Indication: ATRIAL FIBRILLATION
     Dosage: 3.5 MG, QD
     Route: 048
     Dates: end: 20180117
  13. NICARDIPINE [Concomitant]
     Active Substance: NICARDIPINE
     Dosage: UNK
     Route: 065
     Dates: start: 20180117, end: 20180117
  14. GLIMEPIRIDE. [Concomitant]
     Active Substance: GLIMEPIRIDE
     Dosage: UNK
     Route: 048
     Dates: end: 20180116
  15. NEXIUM [Concomitant]
     Active Substance: ESOMEPRAZOLE MAGNESIUM
     Indication: PROPHYLAXIS AGAINST GASTROINTESTINAL ULCER
     Dosage: UNK
     Route: 048
     Dates: start: 20180118
  16. JANUVIA [Concomitant]
     Active Substance: SITAGLIPTIN PHOSPHATE
     Dosage: UNK
     Route: 048
     Dates: start: 20180118
  17. KAYTWO N [Suspect]
     Active Substance: MENATETRENONE
     Indication: PROCOAGULANT THERAPY
  18. ELIQUIS [Concomitant]
     Active Substance: APIXABAN
     Indication: ATRIAL FIBRILLATION
     Dosage: 10 MG, UNK
     Route: 048
     Dates: start: 20180324
  19. NICARDIPINE [Concomitant]
     Active Substance: NICARDIPINE
     Dosage: UNK
     Route: 065
     Dates: start: 20180124, end: 20180203
  20. KAYTWO N [Suspect]
     Active Substance: MENATETRENONE
     Indication: HAEMOSTASIS
     Dosage: 10 MG, TOT
     Route: 042
     Dates: start: 20180117, end: 20180117
  21. ADONA                              /00056903/ [Concomitant]
     Active Substance: CARBAZOCHROME SODIUM SULFONATE
     Indication: HAEMOSTASIS
     Dosage: UNK
     Route: 065
     Dates: start: 20180117, end: 20180117
  22. E KEPPRA [Concomitant]
     Active Substance: LEVETIRACETAM
     Indication: EPILEPSY
     Dosage: UNK
     Route: 065
     Dates: start: 20180117, end: 20180118
  23. FYCOMPA [Concomitant]
     Active Substance: PERAMPANEL
     Indication: SEIZURE
     Route: 065
  24. TRANSAMIN [Concomitant]
     Active Substance: TRANEXAMIC ACID
     Indication: HAEMOSTASIS
     Dosage: UNK
     Route: 065
     Dates: start: 20180117, end: 20180117
  25. HISICEOL [Concomitant]
     Active Substance: FRUCTOSE\GLYCERIN
     Indication: PROPHYLAXIS
     Dosage: UNK
     Route: 065
     Dates: start: 20180118, end: 20180125
  26. SINLESTAL [Concomitant]
     Dosage: UNK
     Route: 048
     Dates: end: 20180116
  27. E KEPPRA [Concomitant]
     Active Substance: LEVETIRACETAM
     Indication: EPILEPSY
     Dosage: UNK
     Route: 048
     Dates: start: 20180118
  28. WARFARIN [Concomitant]
     Active Substance: WARFARIN
     Indication: PROPHYLAXIS
  29. FAMOTIDINE. [Concomitant]
     Active Substance: FAMOTIDINE
     Indication: PROPHYLAXIS AGAINST GASTROINTESTINAL ULCER
     Dosage: UNK
     Route: 065
     Dates: start: 20180117, end: 20180117
  30. FLUITRAN [Concomitant]
     Active Substance: TRICHLORMETHIAZIDE
     Route: 048

REACTIONS (5)
  - Hemiplegia [Not Recovered/Not Resolved]
  - Cerebral artery embolism [Recovered/Resolved with Sequelae]
  - Monoplegia [Not Recovered/Not Resolved]
  - Carotid artery occlusion [Recovered/Resolved]
  - Haemorrhagic infarction [Recovered/Resolved with Sequelae]

NARRATIVE: CASE EVENT DATE: 20180124
